FAERS Safety Report 5279249-4 (Version None)
Quarter: 2007Q1

REPORT INFORMATION
  Report Type: 
  Country: None (occurrence: None)
  Receive Date: 20070322
  Receipt Date: 20061031
  Transmission Date: 20070707
  Serious: Yes (Other)
  Sender: FDA-Public Use
  Company Number: 2007SP004671

PATIENT
  Age: 63 Year
  Sex: Female

DRUGS (21)
  1. BETAMETHASONE [Suspect]
     Indication: PROPHYLAXIS
     Dosage: ; PO
     Route: 048
     Dates: start: 20060509, end: 20060712
  2. CYCLOPHOSPHAMIDE [Suspect]
     Indication: BREAST CANCER
     Dosage: 800 MG; ; IV
     Route: 042
     Dates: start: 20060502, end: 20060502
  3. CYCLOPHOSPHAMIDE [Suspect]
     Indication: BREAST CANCER
     Dosage: 800 MG; ; IV
     Route: 042
     Dates: start: 20060523, end: 20060523
  4. CYCLOPHOSPHAMIDE [Suspect]
     Indication: BREAST CANCER
     Dosage: 800 MG; ; IV
     Route: 042
     Dates: start: 20060613, end: 20060613
  5. CYCLOPHOSPHAMIDE [Suspect]
     Indication: BREAST CANCER
     Dosage: 800 MG; ; IV
     Route: 042
     Dates: start: 20060704, end: 20060704
  6. EPIRUBICIN [Suspect]
     Indication: BREAST CANCER
     Dosage: 100 MG; ; IV
     Route: 042
     Dates: start: 20060502, end: 20060502
  7. EPIRUBICIN [Suspect]
     Indication: BREAST CANCER
     Dosage: 100 MG; ; IV
     Route: 042
     Dates: start: 20060523, end: 20060523
  8. EPIRUBICIN [Suspect]
     Indication: BREAST CANCER
     Dosage: 100 MG; ; IV
     Route: 042
     Dates: start: 20060613, end: 20060613
  9. EPIRUBICIN [Suspect]
     Indication: BREAST CANCER
     Dosage: 100 MG; ; IV
     Route: 042
     Dates: start: 20060704, end: 20060704
  10. AROMASIN [Concomitant]
  11. TAXOTERE [Concomitant]
  12. SEROTONE [Concomitant]
  13. DECADRON [Concomitant]
  14. ZANTAC [Concomitant]
  15. RESTAMIN [Concomitant]
  16. KYTRIL [Concomitant]
  17. NAVOBAN [Concomitant]
  18. LEUCON [Concomitant]
  19. CEPHARANTHIN [Concomitant]
  20. NEUTROGIN [Concomitant]
  21. CIPROFLOXACIN [Concomitant]

REACTIONS (2)
  - NEUTROPENIA [None]
  - THROMBOCYTHAEMIA [None]
